FAERS Safety Report 5592426-8 (Version None)
Quarter: 2008Q1

REPORT INFORMATION
  Report Type: 
  Country: None (occurrence: None)
  Receive Date: 20080111
  Receipt Date: 20071226
  Transmission Date: 20080703
  Serious: Yes (Hospitalization)
  Sender: FDA-Public Use
  Company Number: 2007JP005651

PATIENT
  Age: 12 Year
  Sex: Female

DRUGS (2)
  1. PROGRAF [Suspect]
     Indication: BONE MARROW TRANSPLANT
  2. METHOTREXATE [Concomitant]

REACTIONS (5)
  - BONE MARROW FAILURE [None]
  - BONE MARROW TRANSPLANT [None]
  - DERMATITIS ATOPIC [None]
  - EOSINOPHILIC PUSTULAR FOLLICULITIS [None]
  - PRURITUS [None]
